FAERS Safety Report 25815480 (Version 1)
Quarter: 2025Q3

REPORT INFORMATION
  Report Type: Report from Study
  Country: AE (occurrence: AE)
  Receive Date: 20250918
  Receipt Date: 20250918
  Transmission Date: 20251020
  Serious: Yes (Other)
  Sender: ROCHE
  Company Number: AE-ROCHE-10000383436

PATIENT
  Age: 36 Year
  Sex: Female

DRUGS (1)
  1. OCRELIZUMAB [Suspect]
     Active Substance: OCRELIZUMAB
     Indication: Product used for unknown indication
     Route: 065

REACTIONS (8)
  - Paraparesis [Unknown]
  - Hyperreflexia [Unknown]
  - Renal function test abnormal [Unknown]
  - Spinal osteoarthritis [Unknown]
  - Ataxia [Unknown]
  - Gait disturbance [Unknown]
  - Muscle spasticity [Unknown]
  - Intervertebral disc protrusion [Unknown]
